FAERS Safety Report 23225230 (Version 6)
Quarter: 2025Q1

REPORT INFORMATION
  Report Type: Report from Study
  Country: CA (occurrence: CA)
  Receive Date: 20231124
  Receipt Date: 20250318
  Transmission Date: 20250409
  Serious: Yes (Other)
  Sender: TAKEDA
  Company Number: CA-TAKEDA-2023TUS003368

PATIENT
  Sex: Male

DRUGS (3)
  1. VEDOLIZUMAB [Suspect]
     Active Substance: VEDOLIZUMAB
     Indication: Colitis ulcerative
     Dates: start: 20210611, end: 20250107
  2. PREDNISONE [Concomitant]
     Active Substance: PREDNISONE
  3. HUMIRA [Concomitant]
     Active Substance: ADALIMUMAB

REACTIONS (4)
  - Haematochezia [Unknown]
  - Cardiac disorder [Unknown]
  - Drug ineffective [Recovering/Resolving]
  - Product dose omission issue [Unknown]
